FAERS Safety Report 7346240-3 (Version None)
Quarter: 2011Q1

REPORT INFORMATION
  Report Type: 
  Country: None (occurrence: None)
  Receive Date: 20110311
  Receipt Date: 20110307
  Transmission Date: 20110831
  Serious: Yes (Other)
  Sender: FDA-Public Use
  Company Number: US-PFIZER INC-2011049880

PATIENT
  Sex: Male
  Weight: 81.633 kg

DRUGS (1)
  1. LYRICA [Suspect]
     Indication: NERVE INJURY
     Dosage: 75 MG, 2X/DAY
     Route: 048
     Dates: start: 20110305, end: 20110307

REACTIONS (10)
  - VISION BLURRED [None]
  - DRY MOUTH [None]
  - SPEECH DISORDER [None]
  - SOMNOLENCE [None]
  - DIZZINESS [None]
  - DEPRESSION [None]
  - WEIGHT INCREASED [None]
  - DISTURBANCE IN ATTENTION [None]
  - THINKING ABNORMAL [None]
  - MEMORY IMPAIRMENT [None]
